FAERS Safety Report 8693546 (Version 12)
Quarter: 2013Q2

REPORT INFORMATION
  Report Type: Report from Study
  Country: NL (occurrence: NL)
  Receive Date: 20120730
  Receipt Date: 20130426
  Transmission Date: 20140414
  Serious: Yes (Life-Threatening, Hospitalization, Other)
  Sender: FDA-Public Use
  Company Number: NL-GENZYME-CLOF-1002233

PATIENT
  Age: 56 Year
  Sex: Female
  Weight: 61.9 kg

DRUGS (3)
  1. EVOLTRA [Suspect]
     Indication: MYELODYSPLASTIC SYNDROME
     Dosage: 17 MG AT DAY 2, 4, 6, 8, 10, (1 IN 2 DAYS)
     Route: 042
     Dates: start: 20120701, end: 20120709
  2. IDARUBICIN [Suspect]
     Indication: MYELODYSPLASTIC SYNDROME
     Dosage: 17 MG AT DAY 1, 3, 5 (1 IN 2 DAYS)
     Route: 042
     Dates: start: 20120630, end: 20120704
  3. CYTOSINE ARABINOSIDE [Suspect]
     Indication: MYELODYSPLASTIC SYNDROME
     Dosage: 170 MG, 1 IN 1 DAY
     Route: 042
     Dates: start: 20120630, end: 20120709

REACTIONS (5)
  - Ascites [Recovered/Resolved]
  - Pleural effusion [Recovered/Resolved]
  - Hepatic function abnormal [Recovered/Resolved]
  - Pancytopenia [Recovered/Resolved]
  - Weight decreased [Recovered/Resolved]
